FAERS Safety Report 19950130 (Version 1)
Quarter: 2021Q4

REPORT INFORMATION
  Report Type: Spontaneous
  Country: US (occurrence: US)
  Receive Date: 20211011
  Receipt Date: 20211011
  Transmission Date: 20220303
  Serious: No
  Sender: FDA-Public Use
  Company Number: None

PATIENT
  Sex: Male

DRUGS (1)
  1. STELARA [Suspect]
     Active Substance: USTEKINUMAB
     Indication: Crohn^s disease
     Dosage: ?          OTHER DOSE:90MG/1ML ;OTHER FREQUENCY:EVERY 8 WEEKS;
     Route: 058
     Dates: start: 20210122

REACTIONS (3)
  - Haematochezia [None]
  - Condition aggravated [None]
  - Therapy non-responder [None]
